FAERS Safety Report 24773823 (Version 4)
Quarter: 2025Q1

REPORT INFORMATION
  Report Type: Spontaneous
  Country: JP (occurrence: JP)
  Receive Date: 20241225
  Receipt Date: 20250323
  Transmission Date: 20250409
  Serious: Yes (Hospitalization)
  Sender: ALEXION PHARMACEUTICALS
  Company Number: JP-ASTRAZENECA-240144603_063010_P_1

PATIENT
  Age: 88 Year

DRUGS (10)
  1. DAPAGLIFLOZIN [Suspect]
     Active Substance: DAPAGLIFLOZIN
     Indication: Chronic kidney disease
     Dosage: AFTER BREAKFAST
  2. DAPAGLIFLOZIN [Suspect]
     Active Substance: DAPAGLIFLOZIN
     Dosage: AFTER BREAKFAST
  3. AZOSEMIDE [Concomitant]
     Active Substance: AZOSEMIDE
     Dosage: IN THE MORNING
     Route: 065
  4. CARVEDILOL [Concomitant]
     Active Substance: CARVEDILOL
     Dosage: IN THE MORNING
     Route: 065
  5. LANSOPRAZOLE [Concomitant]
     Active Substance: LANSOPRAZOLE
     Dosage: IN THE MORNING
     Route: 065
  6. ASPIRIN [Concomitant]
     Active Substance: ASPIRIN
     Dosage: IN THE MORNING
     Route: 065
  7. DAPRODUSTAT [Concomitant]
     Active Substance: DAPRODUSTAT
     Dosage: IN THE MORNING
     Route: 065
  8. LEVOTHYROXINE [Concomitant]
     Active Substance: LEVOTHYROXINE
     Dosage: IN THE MORNING
     Route: 065
  9. DAYVIGO [Concomitant]
     Active Substance: LEMBOREXANT
     Dosage: BEFORE BEDTIME
     Route: 065
  10. PAXIL [Concomitant]
     Active Substance: PAROXETINE HYDROCHLORIDE
     Dosage: IN THE MORNING
     Route: 065

REACTIONS (5)
  - Renal disorder [Recovering/Resolving]
  - Hypernatraemia [Recovering/Resolving]
  - Glucose urine present [Recovering/Resolving]
  - Therapeutic response prolonged [Unknown]
  - Dehydration [Unknown]
